FAERS Safety Report 4902341-8 (Version None)
Quarter: 2006Q1

REPORT INFORMATION
  Report Type: 
  Country: None (occurrence: None)
  Receive Date: 20060202
  Receipt Date: 20060202
  Transmission Date: 20060701
  Serious: Yes (Hospitalization)
  Sender: FDA-Public Use
  Company Number: None

PATIENT
  Age: 56 Year
  Sex: Female
  Weight: 90.7194 kg

DRUGS (7)
  1. BEVACIZUMAB [Suspect]
     Indication: RECTAL CANCER
     Dosage: 566 MG Q 2 WEEKS (SEE IMAGE FOR ROUTE)
     Dates: start: 20050815, end: 20050912
  2. OXALIPLATIN [Suspect]
     Indication: RECTAL CANCER
     Dosage: 61 MG WEEKLY X 5 TIMES (SEE IMAGE FOR ROUTE)
     Dates: start: 20050815, end: 20050926
  3. FLUOROURACIL [Concomitant]
  4. ATENOLOL [Concomitant]
  5. AMBIEN [Concomitant]
  6. RAMIPRIL [Concomitant]
  7. ALBUTEROL [Concomitant]

REACTIONS (3)
  - BILIARY DILATATION [None]
  - CHOLECYSTITIS ACUTE [None]
  - CHOLELITHIASIS [None]
